FAERS Safety Report 23320466 (Version 1)
Quarter: 2023Q4

REPORT INFORMATION
  Report Type: Spontaneous
  Country: US (occurrence: US)
  Receive Date: 20231220
  Receipt Date: 20231220
  Transmission Date: 20240110
  Serious: No
  Sender: FDA-Public Use
  Company Number: US-PFIZER INC-PV202300199548

PATIENT
  Age: 62 Year
  Sex: Female

DRUGS (11)
  1. IBRANCE [Suspect]
     Active Substance: PALBOCICLIB
     Dosage: 125 MG, CYCLIC (FOR 21 DAYS, 7 DAYS OFF)
     Route: 048
     Dates: start: 20230415, end: 20231206
  2. FOSAMAX [Concomitant]
     Active Substance: ALENDRONATE SODIUM
  3. ARIMIDEX [Concomitant]
     Active Substance: ANASTROZOLE
  4. BIKTARVY [Concomitant]
     Active Substance: BICTEGRAVIR SODIUM\EMTRICITABINE\TENOFOVIR ALAFENAMIDE FUMARATE
  5. VITAMIN D NOS [Concomitant]
     Active Substance: VITAMIN D NOS
  6. CYANOCOBALAMIN [Concomitant]
     Active Substance: CYANOCOBALAMIN
  7. FEMARA [Concomitant]
     Active Substance: LETROZOLE
  8. PAMELOR [Concomitant]
     Active Substance: NORTRIPTYLINE HYDROCHLORIDE
  9. ADVIL [Concomitant]
     Active Substance: IBUPROFEN
  10. LETROZOLE [Concomitant]
     Active Substance: LETROZOLE
  11. MOTRIN [Concomitant]
     Active Substance: IBUPROFEN

REACTIONS (3)
  - Dyspnoea [Unknown]
  - White blood cell count decreased [Recovered/Resolved]
  - Lung disorder [Recovered/Resolved]

NARRATIVE: CASE EVENT DATE: 20231201
